FAERS Safety Report 12784474 (Version 1)
Quarter: 2016Q3

REPORT INFORMATION
  Report Type: Spontaneous
  Country: US (occurrence: US)
  Receive Date: 20160927
  Receipt Date: 20160927
  Transmission Date: 20161109
  Serious: Yes (Other)
  Sender: FDA-Public Use
  Company Number: US-PFIZER INC-2016444209

PATIENT

DRUGS (1)
  1. ALTACE [Suspect]
     Active Substance: RAMIPRIL
     Dosage: UNK

REACTIONS (5)
  - Blood pressure decreased [Unknown]
  - Renal failure [Unknown]
  - Oxygen saturation decreased [Unknown]
  - Toxicity to various agents [Unknown]
  - Swelling [Unknown]
